FAERS Safety Report 18397371 (Version 1)
Quarter: 2020Q4

REPORT INFORMATION
  Report Type: Spontaneous
  Country: US (occurrence: US)
  Receive Date: 20201017
  Receipt Date: 20201017
  Transmission Date: 20210114
  Serious: Yes (Death)
  Sender: FDA-Public Use
  Company Number: None

PATIENT
  Age: 71 Year
  Sex: Male
  Weight: 60.3 kg

DRUGS (14)
  1. XPOVIO [Suspect]
     Active Substance: SELINEXOR
     Indication: PLASMA CELL MYELOMA
     Dosage: ??
     Route: 048
     Dates: start: 20200819, end: 20201017
  2. LOVASTATIN 20 MG ORAL AT BEDTIME [Concomitant]
  3. DEXAMETHAZONE [Concomitant]
     Active Substance: DEXAMETHASONE
     Dates: start: 20200818, end: 20201017
  4. CITALOPRAM HYDROBROMIDE 20 MG [Concomitant]
  5. COLESTID 1 GM ORAL BID [Concomitant]
  6. AMLODIPINE BESYLATE 5 MG QAM [Concomitant]
  7. LISINOPRIL 5 MG ORAL QAM [Concomitant]
  8. PROCHLORPERAZINE MALEATE 10 MG ORAL PRN [Concomitant]
  9. SITAGLIPTIN 50 MG PO [Concomitant]
  10. OMEPRAZOLE 20 MG ORAL [Concomitant]
  11. ACYCLOVIR  400 MG ORAL BID [Concomitant]
  12. ESCITALOPRAM OXALATE 20 MG ORAL AT BEDTIME [Concomitant]
  13. METOPROLOL TARTRATE 50 MG ORAL BID [Concomitant]
  14. ONDANSETRON HCL 8 MG ORAL BID [Concomitant]

REACTIONS (1)
  - Death [None]

NARRATIVE: CASE EVENT DATE: 20201017
